FAERS Safety Report 4292627-5 (Version None)
Quarter: 2004Q1

REPORT INFORMATION
  Report Type: 
  Country: None (occurrence: None)
  Receive Date: 20040211
  Receipt Date: 20040204
  Transmission Date: 20041129
  Serious: Yes (Other)
  Sender: FDA-Public Use
  Company Number: PHBS2004IT01780

PATIENT
  Age: 76 Year
  Sex: Female

DRUGS (4)
  1. TRILEPTAL [Suspect]
     Dosage: 600 MG, BID
  2. LACIDIPINE [Concomitant]
     Dosage: 4 MG, DAILY
  3. ASPIRIN [Concomitant]
     Dosage: 100 MG, DAILY
  4. GABAPENTIN [Concomitant]
     Dosage: 900 MG, DAILY

REACTIONS (4)
  - ASTERIXIS [None]
  - DYSKINESIA [None]
  - ESSENTIAL TREMOR [None]
  - LACUNAR INFARCTION [None]
